FAERS Safety Report 5481955-3 (Version None)
Quarter: 2007Q4

REPORT INFORMATION
  Report Type: 
  Country: None (occurrence: None)
  Receive Date: 20071005
  Receipt Date: 20071001
  Transmission Date: 20080405
  Serious: Yes (Hospitalization, Other)
  Sender: FDA-Public Use
  Company Number: 2007SP016827

PATIENT
  Age: 58 Year
  Sex: Male
  Weight: 93.441 kg

DRUGS (19)
  1. PEG-INTRON [Suspect]
     Indication: HEPATITIS C
     Dosage: 150 MCG; QW; SC
     Route: 058
     Dates: start: 20070803, end: 20070810
  2. REBETOL [Suspect]
     Indication: HEPATITIS C
     Dosage: 1200 MG;QD;PO
     Route: 048
     Dates: start: 20070803, end: 20070810
  3. FORMOTEROL FUMARATE [Concomitant]
  4. TIOTROPIUM [Concomitant]
  5. MONTELUKAST SODIUM [Concomitant]
  6. HYDROCHLOROTHIAZIDE [Concomitant]
  7. LISINOPRIL [Concomitant]
  8. AZELSATINE [Concomitant]
  9. THEOPHYLLINE [Concomitant]
  10. NITROGLYCERIN [Concomitant]
  11. LORATADINE [Concomitant]
  12. ALENDRONATE SODIUM [Concomitant]
  13. AMLODIPINE BESYLATE [Concomitant]
  14. LOSARTAN POTASSIUM [Concomitant]
  15. CITALOPRAM HYDROBROMIDE [Concomitant]
  16. OMEPRAZOLE [Concomitant]
  17. MOMETASONE FUROATE [Concomitant]
  18. ALBUTEROL [Concomitant]
  19. HYDROCODONE W/APAP [Concomitant]

REACTIONS (7)
  - AZOTAEMIA [None]
  - DEHYDRATION [None]
  - GASTROENTERITIS [None]
  - HYPOVOLAEMIA [None]
  - ORAL INTAKE REDUCED [None]
  - RENAL FAILURE ACUTE [None]
  - WEIGHT DECREASED [None]
